FAERS Safety Report 20760974 (Version 1)
Quarter: 2022Q2

REPORT INFORMATION
  Report Type: Spontaneous
  Country: US (occurrence: US)
  Receive Date: 20220428
  Receipt Date: 20220428
  Transmission Date: 20220720
  Serious: Yes (Death)
  Sender: FDA-Public Use
  Company Number: US-SANOFI-00949595

PATIENT
  Age: 74 Year
  Sex: Male

DRUGS (1)
  1. JEVTANA [Suspect]
     Active Substance: CABAZITAXEL
     Dosage: UNK

REACTIONS (3)
  - Prostatic specific antigen increased [Fatal]
  - Prostatic operation [Fatal]
  - Unevaluable event [Fatal]

NARRATIVE: CASE EVENT DATE: 20010101
